FAERS Safety Report 11201827 (Version 1)
Quarter: 2015Q2

REPORT INFORMATION
  Report Type: Spontaneous
  Country: SE (occurrence: SE)
  Receive Date: 20150619
  Receipt Date: 20150619
  Transmission Date: 20150821
  Serious: Yes (Other)
  Sender: FDA-Public Use
  Company Number: SE-AMGEN-SWESP2015058031

PATIENT
  Age: 60 Year
  Sex: Female

DRUGS (26)
  1. FRAGMIN [Concomitant]
     Active Substance: DALTEPARIN SODIUM
     Dosage: UNK
  2. BISOPROLOL ACTAVIS [Concomitant]
     Active Substance: BISOPROLOL
     Dosage: 5 MG, UNK
     Route: 048
  3. MORFIN MEDA [Concomitant]
     Active Substance: MORPHINE SULFATE
     Dosage: 20 MG, UNK
     Route: 048
  4. CALCICHEW-D3 SPEARMINT [Concomitant]
     Active Substance: CALCIUM\CHOLECALCIFEROL
     Dosage: 500 MH/ 400 IU
  5. LEVAXIN [Concomitant]
     Active Substance: LEVOTHYROXINE SODIUM
     Dosage: 100 MUG, UNK
     Route: 048
  6. CILAXORAL [Concomitant]
     Dosage: 7.5 MG/ML, UNK
     Route: 048
  7. IBUMETIN [Concomitant]
     Active Substance: IBUPROFEN
     Dosage: 600 MG, UNK
     Route: 048
  8. IMOVANE [Concomitant]
     Active Substance: ZOPICLONE
     Dosage: 7.5 MG, UNK
     Route: 048
  9. ANDOLEX [Concomitant]
     Dosage: 1.5 MG/ML, UNK
  10. KAVEPENIN [Concomitant]
     Active Substance: PHENOXYMETHYLPENICILLIN CALCIUM
     Dosage: 800 MG, UNK
     Route: 048
  11. AFINITOR [Concomitant]
     Active Substance: EVEROLIMUS
     Dosage: 5 MG, UNK
     Route: 048
  12. DOLCONTIN                          /00036302/ [Concomitant]
     Active Substance: MORPHINE
     Dosage: 60 MG, UNK
     Route: 048
  13. XERODENT                           /01274201/ [Concomitant]
     Dosage: 28.6/0.25 MG
  14. ESOMEPRAZOL ACTAVIS [Concomitant]
     Dosage: 20 MG, UNK
     Route: 048
  15. PRIMPERAN [Concomitant]
     Active Substance: METOCLOPRAMIDE HYDROCHLORIDE
  16. ZOLEDRONIC ACID ANHYDROUS [Suspect]
     Active Substance: ZOLEDRONIC ACID ANHYDROUS
     Indication: PRODUCT USED FOR UNKNOWN INDICATION
     Dosage: UNK
     Route: 065
     Dates: start: 201401
  17. CITALOPRAM CNSPHARMA               /00582602/ [Concomitant]
     Dosage: 20 MG, UNK
     Route: 048
  18. XYLOPROCT                          /07379101/ [Concomitant]
     Dosage: UNK UNK, UNK
  19. OXASCAND [Concomitant]
     Active Substance: OXAZEPAM
     Dosage: 10 MG, UNK
     Route: 048
  20. XGEVA [Suspect]
     Active Substance: DENOSUMAB
     Indication: METASTASES TO BONE
     Dosage: 120 MG, UNK
     Route: 058
     Dates: start: 20150129
  21. CANODERM [Concomitant]
     Dosage: 5 %, UNK
  22. BETAPRED [Concomitant]
     Active Substance: BETAMETHASONE SODIUM PHOSPHATE
     Dosage: 0.5 MG, UNK
     Route: 048
  23. EXEMESTAN ACTAVIS [Concomitant]
     Dosage: 25 MG, UNK
     Route: 048
  24. SAROTEN [Concomitant]
     Active Substance: AMITRIPTYLINE
     Dosage: 25 MG, UNK
     Route: 048
  25. POSTAFEN                           /00060202/ [Concomitant]
     Active Substance: BUCLIZINE HYDROCHLORIDE
     Dosage: 25 MG, UNK
     Route: 048
  26. ACETYLCYSTEIN ALTERNOVA [Concomitant]
     Dosage: 200 MG, UNK
     Route: 048

REACTIONS (1)
  - Osteonecrosis of jaw [Not Recovered/Not Resolved]

NARRATIVE: CASE EVENT DATE: 20150514
